FAERS Safety Report 24436931 (Version 1)
Quarter: 2024Q4

REPORT INFORMATION
  Report Type: Report from Study
  Country: CO (occurrence: CO)
  Receive Date: 20241015
  Receipt Date: 20241015
  Transmission Date: 20250114
  Serious: Yes (Hospitalization)
  Sender: ASTELLAS
  Company Number: CO-ASTELLAS-2024-AER-012196

PATIENT
  Age: 77 Year
  Sex: Female
  Weight: 67 kg

DRUGS (1)
  1. TACROLIMUS [Suspect]
     Active Substance: TACROLIMUS
     Indication: Liver transplant
     Dosage: PROGRAF 1 MG EVERY 12 HOURS (2 MG IN THE MORNING AM AND 1 MG AT NIGHT PM): DAILY DOSE OF 3 MG
     Route: 048
     Dates: start: 20160316

REACTIONS (3)
  - Laboratory test abnormal [Unknown]
  - Secondary immunodeficiency [Unknown]
  - Liver transplant rejection [Unknown]
